FAERS Safety Report 9999298 (Version 1)
Quarter: 2014Q1

REPORT INFORMATION
  Report Type: Spontaneous
  Country: US (occurrence: None)
  Receive Date: 20140311
  Receipt Date: 20140311
  Transmission Date: 20141002
  Serious: Yes (Disabling)
  Sender: FDA-Public Use
  Company Number: None

PATIENT
  Age: 28 Year
  Sex: Male
  Weight: 124.74 kg

DRUGS (1)
  1. AMBIEN 10MG [Suspect]
     Indication: INSOMNIA
     Route: 048
     Dates: start: 20140226, end: 20140309

REACTIONS (3)
  - Drug ineffective [None]
  - Diplopia [None]
  - Vision blurred [None]
